FAERS Safety Report 20744570 (Version 1)
Quarter: 2022Q2

REPORT INFORMATION
  Report Type: Spontaneous
  Country: US (occurrence: US)
  Receive Date: 20220425
  Receipt Date: 20220425
  Transmission Date: 20220721
  Serious: No
  Sender: FDA-Public Use
  Company Number: US-APOTEX-2022AP003032

PATIENT
  Sex: Female

DRUGS (1)
  1. MOMETASONE FUROATE [Suspect]
     Active Substance: MOMETASONE FUROATE
     Indication: Hypersensitivity
     Dosage: 2 DOSAGE FORM, BID (1 PUFF ON EACH NOSTRIL TWICE A DAY (MORNING AND EVENING))
     Route: 045

REACTIONS (3)
  - Product odour abnormal [Unknown]
  - Product quality issue [Unknown]
  - Nausea [Not Recovered/Not Resolved]
